FAERS Safety Report 16863447 (Version 3)
Quarter: 2019Q4

REPORT INFORMATION
  Report Type: Report from Study
  Country: LT (occurrence: LT)
  Receive Date: 20190927
  Receipt Date: 20191029
  Transmission Date: 20200122
  Serious: Yes (Hospitalization, Other)
  Sender: FDA-Public Use
  Company Number: LT-ASTRAZENECA-2019SF35981

PATIENT
  Age: 79 Year
  Sex: Female

DRUGS (7)
  1. TORASEMIDE [Concomitant]
     Active Substance: TORSEMIDE
     Dosage: 5 MG X1
     Route: 048
  2. BRILIQUE [Suspect]
     Active Substance: TICAGRELOR
     Indication: MYOCARDIAL INFARCTION
     Dosage: 90MG X2
     Route: 048
     Dates: start: 20190904, end: 20190921
  3. ASPIRIN. [Concomitant]
     Active Substance: ASPIRIN
     Route: 048
  4. ATORIS [Concomitant]
     Active Substance: ATORVASTATIN CALCIUM
     Dosage: 80 MGX1
  5. BRILIQUE [Suspect]
     Active Substance: TICAGRELOR
     Indication: MYOCARDIAL INFARCTION
     Dosage: 90MG X2
     Route: 048
  6. ALPRASOLAM [Concomitant]
     Dosage: 0,25 MG X1
     Route: 048
  7. SPIRIX [Concomitant]
     Active Substance: SPIRONOLACTONE
     Dosage: 25 MG X1
     Route: 048

REACTIONS (5)
  - Muscular weakness [Unknown]
  - Coordination abnormal [Unknown]
  - Balance disorder [Unknown]
  - Cerebrovascular accident [Unknown]
  - Vertigo [Unknown]

NARRATIVE: CASE EVENT DATE: 20190919
